FAERS Safety Report 5058298-5 (Version None)
Quarter: 2006Q2

REPORT INFORMATION
  Report Type: 
  Country: None (occurrence: None)
  Receive Date: 20060627
  Receipt Date: 20060126
  Transmission Date: 20061013
  Serious: Yes (Death)
  Sender: FDA-Public Use
  Company Number: 434108

PATIENT
  Sex: Male

DRUGS (1)
  1. INTERFERON ALFA-2A (INTERFERON ALFA-2A) [Suspect]
     Indication: DRUG USE FOR UNKNOWN INDICATION
     Dosage: 1 PER 2 DAY

REACTIONS (1)
  - COMPLETED SUICIDE [None]
